FAERS Safety Report 4516541-2 (Version None)
Quarter: 2005Q1

REPORT INFORMATION
  Report Type: 
  Country: None (occurrence: None)
  Receive Date: 20041029
  Receipt Date: 20040713
  Transmission Date: 20050727
  Serious: No
  Sender: FDA-Public Use
  Company Number: 2004-118388-NL

PATIENT
  Age: 34 Year
  Sex: Female
  Weight: 59.1 kg

DRUGS (3)
  1. NUVARING [Suspect]
     Indication: CONTRACEPTION
     Dosage: DF DAILY VAGINAL
     Route: 067
     Dates: start: 20020401
  2. K-Y JELLY [Concomitant]
  3. MULTI-VITAMINS [Concomitant]

REACTIONS (2)
  - VAGINAL CONTRACEPTIVE DEVICE EXPELLED [None]
  - WITHDRAWAL BLEED [None]
